FAERS Safety Report 5836815-2 (Version None)
Quarter: 2008Q3

REPORT INFORMATION
  Report Type: 
  Country: None (occurrence: None)
  Receive Date: 20080806
  Receipt Date: 20080806
  Transmission Date: 20090109
  Serious: Yes (Other)
  Sender: FDA-Public Use
  Company Number: None

PATIENT
  Sex: Female
  Weight: 65.7716 kg

DRUGS (1)
  1. PROVIGIL [Suspect]
     Indication: NARCOLEPSY
     Dosage: 100 MG ONCE DAILY PO
     Route: 048
     Dates: start: 20080501, end: 20080801

REACTIONS (3)
  - DYSKINESIA [None]
  - EYELID FUNCTION DISORDER [None]
  - MUSCLE TWITCHING [None]
